FAERS Safety Report 18740855 (Version 1)
Quarter: 2021Q1

REPORT INFORMATION
  Report Type: Spontaneous
  Country: US (occurrence: US)
  Receive Date: 20210114
  Receipt Date: 20210114
  Transmission Date: 20210419
  Serious: No
  Sender: FDA-Public Use
  Company Number: None

PATIENT
  Age: 55 Year
  Sex: Female

DRUGS (8)
  1. OMEPRAZOLE 40 MG [Concomitant]
     Active Substance: OMEPRAZOLE
     Dates: start: 20181210
  2. BUSPIRONE 10MG [Concomitant]
     Dates: start: 20181210
  3. SYNTHROID 0.15MG [Concomitant]
     Dates: start: 20181210
  4. IBRANCE [Suspect]
     Active Substance: PALBOCICLIB
     Indication: BREAST CANCER
     Route: 048
     Dates: start: 20200303
  5. ATENOLOL 100MG [Concomitant]
     Active Substance: ATENOLOL
     Dates: start: 20181210
  6. CLONAZEPAM 0.5MG [Concomitant]
     Active Substance: CLONAZEPAM
     Dates: start: 20181210
  7. ALPRAZOLAM 0.25MG [Concomitant]
     Active Substance: ALPRAZOLAM
     Dates: start: 20181210
  8. SUMATRIPTAN 100MG [Concomitant]
     Active Substance: SUMATRIPTAN
     Dates: start: 20181210

REACTIONS (2)
  - White blood cell count decreased [None]
  - Intentional dose omission [None]

NARRATIVE: CASE EVENT DATE: 20201228
